FAERS Safety Report 8416191-1 (Version None)
Quarter: 2012Q2

REPORT INFORMATION
  Report Type: 
  Country: None (occurrence: None)
  Receive Date: 20120530
  Receipt Date: 20120518
  Transmission Date: 20120825
  Serious: Yes (Hospitalization)
  Sender: FDA-Public Use
  Company Number: AUR-APL-2012-02119

PATIENT
  Age: 76 Year
  Sex: Female
  Weight: 70 kg

DRUGS (18)
  1. SIMVASTATIN [Suspect]
  2. PREDNISOLONE [Concomitant]
  3. SPIRIVA [Concomitant]
  4. DUOVENT (DUOVENT) [Concomitant]
  5. VERAPAMIL [Concomitant]
  6. LOSARTAN POTASSIUM [Concomitant]
  7. OXAZEPAM [Concomitant]
  8. BRICANYL [Concomitant]
  9. ACETAMINOPHEN [Concomitant]
  10. POTASSIUM CHLORIDE [Concomitant]
  11. BERODUAL (DUOVENT) [Concomitant]
  12. PRADAXA [Suspect]
     Dosage: ORAL
     Route: 048
     Dates: start: 20111205, end: 20120424
  13. SERETIDE (SERETIDE) [Concomitant]
  14. MORPHINE SULFATE [Concomitant]
  15. DIGOXIN [Concomitant]
  16. SERTRALINE HYDROCHLORIDE [Concomitant]
  17. FUROSEMIDE [Concomitant]
  18. ZOLPIDEM TARTRATE [Concomitant]

REACTIONS (3)
  - ABDOMINAL PAIN UPPER [None]
  - IRON DEFICIENCY ANAEMIA [None]
  - GASTRIC ULCER [None]
